FAERS Safety Report 13936005 (Version 1)
Quarter: 2017Q3

REPORT INFORMATION
  Report Type: Report from Study
  Country: US (occurrence: US)
  Receive Date: 20170905
  Receipt Date: 20170905
  Transmission Date: 20171127
  Serious: Yes (Hospitalization)
  Sender: FDA-Public Use
  Company Number: US-BAYER-2017-162185

PATIENT

DRUGS (3)
  1. MAGNEVIST [Suspect]
     Active Substance: GADOPENTETATE DIMEGLUMINE
     Indication: NUCLEAR MAGNETIC RESONANCE IMAGING BRAIN
     Dosage: 15 MG, ONCE
     Route: 042
     Dates: start: 20020301, end: 20020301
  2. MAGNEVIST [Suspect]
     Active Substance: GADOPENTETATE DIMEGLUMINE
     Indication: NUCLEAR MAGNETIC RESONANCE IMAGING
     Dosage: 20 MG, ONCE
     Route: 042
     Dates: start: 20021116, end: 20021116
  3. MAGNEVIST [Suspect]
     Active Substance: GADOPENTETATE DIMEGLUMINE
     Indication: ANGIOGRAM CEREBRAL

REACTIONS (13)
  - Headache [None]
  - Respiration abnormal [None]
  - Malaise [None]
  - Tinnitus [Recovered/Resolved]
  - Incorrect dose administered [None]
  - Disturbance in attention [None]
  - Respiration abnormal [None]
  - Tinnitus [Recovered/Resolved]
  - Irritability [None]
  - Headache [None]
  - Disturbance in attention [None]
  - Irritability [None]
  - Malaise [None]

NARRATIVE: CASE EVENT DATE: 200203
